FAERS Safety Report 25595869 (Version 1)
Quarter: 2025Q3

REPORT INFORMATION
  Report Type: Spontaneous
  Country: US (occurrence: None)
  Receive Date: 20250722
  Receipt Date: 20250722
  Transmission Date: 20251021
  Serious: Yes (Other)
  Sender: FDA-CTU
  Company Number: None

PATIENT
  Age: 37 Year
  Sex: Female

DRUGS (2)
  1. KISQALI [Suspect]
     Active Substance: RIBOCICLIB SUCCINATE
     Dosage: FREQUENCY : DAILY;?
  2. TAMSULOSIN [Suspect]
     Active Substance: TAMSULOSIN

REACTIONS (12)
  - Nausea [None]
  - Dyspnoea [None]
  - Alopecia [None]
  - Headache [None]
  - Diarrhoea [None]
  - Pain [None]
  - Pruritus [None]
  - Swelling [None]
  - Fall [None]
  - Foot fracture [None]
  - Drug interaction [None]
  - Constipation [None]
